FAERS Safety Report 18652453 (Version 2)
Quarter: 2022Q4

REPORT INFORMATION
  Report Type: Spontaneous
  Country: FR (occurrence: FR)
  Receive Date: 20201223
  Receipt Date: 20221028
  Transmission Date: 20230113
  Serious: Yes (Other)
  Sender: FDA-Public Use
  Company Number: None

PATIENT
  Age: 29 Year
  Sex: Female

DRUGS (1)
  1. SPINRAZA [Suspect]
     Active Substance: NUSINERSEN
     Indication: Spinal muscular atrophy
     Dosage: 2.4MG/ML, SOLUTION INJECTABLE
     Route: 050
     Dates: start: 20200820

REACTIONS (1)
  - Photophobia [Recovered/Resolved]

NARRATIVE: CASE EVENT DATE: 20200901
